FAERS Safety Report 6413081-0 (Version None)
Quarter: 2009Q4

REPORT INFORMATION
  Report Type: 
  Country: None (occurrence: None)
  Receive Date: 20091022
  Receipt Date: 20091022
  Transmission Date: 20100525
  Serious: Yes (Other)
  Sender: FDA-Public Use
  Company Number: None

PATIENT
  Age: 76 Year
  Sex: Male
  Weight: 85.7298 kg

DRUGS (1)
  1. KROGER ADULT LOW STRENGTH 81 MG KORGER [Suspect]
     Dosage: 1 PER DAY PO
     Route: 048
     Dates: start: 20091012, end: 20091015

REACTIONS (1)
  - ABDOMINAL DISCOMFORT [None]
